FAERS Safety Report 4379344-8 (Version None)
Quarter: 2004Q2

REPORT INFORMATION
  Report Type: 
  Country: None (occurrence: None)
  Receive Date: 20040610
  Receipt Date: 20040528
  Transmission Date: 20050107
  Serious: Yes (Other)
  Sender: FDA-Public Use
  Company Number: 2004021959

PATIENT
  Age: 55 Year
  Sex: Female
  Weight: 43.5453 kg

DRUGS (5)
  1. NEURONTIN [Suspect]
     Indication: ILL-DEFINED DISORDER
     Dosage: ORAL
     Route: 048
     Dates: start: 20040326, end: 20040327
  2. COLCHICINE (COLCHICINE) [Concomitant]
  3. CONJUGATED ESTROGENS [Concomitant]
  4. VICOPROFEN [Concomitant]
  5. ALL OTHER THERAPEUTIC PRODUCTS (ALL OTHER THERAPEUTIC PRODUCTS) [Concomitant]

REACTIONS (5)
  - ANGER [None]
  - HEADACHE [None]
  - POSTOPERATIVE ADHESION [None]
  - SKIN DISCOLOURATION [None]
  - VISUAL ACUITY REDUCED [None]
